FAERS Safety Report 17235618 (Version 1)
Quarter: 2020Q1

REPORT INFORMATION
  Report Type: Spontaneous
  Country: US (occurrence: US)
  Receive Date: 20200106
  Receipt Date: 20200106
  Transmission Date: 20200409
  Serious: Yes (Other)
  Sender: FDA-Public Use
  Company Number: US-DRREDDYS-USA/USA/20/0118141

PATIENT
  Age: 56 Year
  Sex: Male

DRUGS (5)
  1. TACROLIMUS. [Suspect]
     Active Substance: TACROLIMUS
     Dosage: TARGET LEVEL 6-8 NG/ML
     Route: 065
  2. PREDNISONE. [Concomitant]
     Active Substance: PREDNISONE
     Indication: PRODUCT USED FOR UNKNOWN INDICATION
  3. TACROLIMUS. [Suspect]
     Active Substance: TACROLIMUS
     Indication: PRODUCT USED FOR UNKNOWN INDICATION
     Dosage: INCREASED FROM 0.5 MG TWICE A DAY TO 1 MG IN THE MORNING AND 0.5 MG IN THE EVENING
     Route: 065
  4. TACROLIMUS. [Suspect]
     Active Substance: TACROLIMUS
     Dosage: INCREASED FROM 0.5 MG TWICE A DAY TO 1 MG IN THE MORNING AND 0.5 MG IN THE EVENING
     Route: 065
  5. MYCOPHENOLATE MOFETIL. [Concomitant]
     Active Substance: MYCOPHENOLATE MOFETIL
     Indication: PRODUCT USED FOR UNKNOWN INDICATION
     Route: 065

REACTIONS (9)
  - Peroneal nerve palsy [Recovering/Resolving]
  - Neuropathy peripheral [Recovering/Resolving]
  - Weight decreased [Recovering/Resolving]
  - Thrombotic microangiopathy [Recovering/Resolving]
  - Tremor [Recovering/Resolving]
  - Diarrhoea [Recovering/Resolving]
  - Complications of transplanted kidney [Recovering/Resolving]
  - Headache [Recovering/Resolving]
  - Sciatic nerve neuropathy [Recovering/Resolving]
